FAERS Safety Report 25500095 (Version 1)
Quarter: 2025Q3

REPORT INFORMATION
  Report Type: Spontaneous
  Country: EU (occurrence: EU)
  Receive Date: 20250701
  Receipt Date: 20250701
  Transmission Date: 20251020
  Serious: Yes (Other)
  Sender: NOVARTIS
  Company Number: EU-002147023-NVSC2025HU101414

PATIENT
  Age: 59 Year
  Sex: Male

DRUGS (3)
  1. TASIGNA [Suspect]
     Active Substance: NILOTINIB
     Indication: Chronic myeloid leukaemia
     Route: 065
     Dates: start: 201312
  2. TASIGNA [Suspect]
     Active Substance: NILOTINIB
     Indication: Philadelphia chromosome positive
     Route: 065
  3. TASIGNA [Suspect]
     Active Substance: NILOTINIB
     Route: 065
     Dates: end: 201404

REACTIONS (5)
  - Thrombocytopenia [Recovered/Resolved]
  - Bone marrow failure [Unknown]
  - Leukopenia [Recovered/Resolved]
  - Erythropoiesis abnormal [Unknown]
  - Therapy non-responder [Unknown]

NARRATIVE: CASE EVENT DATE: 20140401
